FAERS Safety Report 6359355-3 (Version None)
Quarter: 2009Q3

REPORT INFORMATION
  Report Type: 
  Country: None (occurrence: None)
  Receive Date: 20090917
  Receipt Date: 20090908
  Transmission Date: 20100115
  Serious: Yes (Death, Other)
  Sender: FDA-Public Use
  Company Number: CN-BRISTOL-MYERS SQUIBB COMPANY-14779789

PATIENT
  Sex: Male

DRUGS (2)
  1. ERBITUX [Suspect]
     Indication: RECTAL CANCER
     Route: 042
     Dates: start: 20090901
  2. IRINOTECAN HCL [Concomitant]
     Indication: RECTAL CANCER

REACTIONS (2)
  - BLOOD PRESSURE DECREASED [None]
  - PANCYTOPENIA [None]
